FAERS Safety Report 4606913-X (Version None)
Quarter: 2005Q1

REPORT INFORMATION
  Report Type: 
  Country: None (occurrence: None)
  Receive Date: 20050309
  Receipt Date: 20050302
  Transmission Date: 20050727
  Serious: Yes (Hospitalization)
  Sender: FDA-Public Use
  Company Number: TPA2004A01206

PATIENT
  Age: 47 Year
  Sex: Male
  Weight: 117.9352 kg

DRUGS (16)
  1. ACTOS [Suspect]
     Indication: DIABETES MELLITUS NON-INSULIN-DEPENDENT
     Dosage: 45 MG, 1 IN 1 D, PER ORAL
     Route: 048
  2. COREG (CARVEDILOL) (6.25 MILLIGRAM) [Suspect]
     Dosage: 6.25 MG, 2 IN 1 D, PER ORAL
     Route: 048
     Dates: start: 20030801
  3. ZOLOFT [Suspect]
     Dosage: 50 MG, 1 IN 1 D
  4. VALPROIC ACID (VALPROIC ACID) (250 MILLIGRAM) [Suspect]
     Dosage: 500 MG, HS
  5. LANOXIN [Suspect]
     Dosage: 0.25 MG, 1 IN 1 D
  6. TRAZADONE (TRAZODONE) (50 MILLIGRAM) [Suspect]
     Dosage: 50 MG OR 100 MG, HS
  7. GLUCOTROL XL [Concomitant]
  8. GLUCOPHAGE [Concomitant]
  9. METOLAZONE [Concomitant]
  10. ALDACTONE [Concomitant]
  11. LASIX [Concomitant]
  12. POTASSIUM CHLORIDE [Concomitant]
  13. ATACAND [Concomitant]
  14. LEXAPRO [Concomitant]
  15. NAPROXEN [Concomitant]
  16. NITROGLYCERIN [Concomitant]

REACTIONS (10)
  - BLOOD ALKALINE PHOSPHATASE INCREASED [None]
  - BLOOD GLUCOSE INCREASED [None]
  - CARDIAC FAILURE CONGESTIVE [None]
  - CARDIOMEGALY [None]
  - CARDIOMYOPATHY [None]
  - DILATATION ATRIAL [None]
  - DILATATION VENTRICULAR [None]
  - HEADACHE [None]
  - MYOCARDIAL ISCHAEMIA [None]
  - TREATMENT NONCOMPLIANCE [None]
